FAERS Safety Report 25706189 (Version 2)
Quarter: 2025Q4

REPORT INFORMATION
  Report Type: Spontaneous
  Country: US (occurrence: US)
  Receive Date: 20250820
  Receipt Date: 20251202
  Transmission Date: 20260118
  Serious: No
  Sender: SPRINGWORKS THERAPEUTIC
  Company Number: US-SPRINGWORKS THERAPEUTICS-SW-002914

PATIENT
  Age: 31 Year
  Sex: Female

DRUGS (4)
  1. GOMEKLI [Suspect]
     Active Substance: MIRDAMETINIB
     Indication: Neurofibromatosis
     Dosage: 4 MILLIGRAM, BID 3 WEEKS ON 1 WEEK OFF
     Dates: start: 20250426
  2. GOMEKLI [Suspect]
     Active Substance: MIRDAMETINIB
     Indication: Neurofibroma
  3. DOXYCYCLINE [Suspect]
     Active Substance: DOXYCYCLINE
     Indication: Rash
     Dosage: UNK
     Dates: start: 20250426, end: 20250602
  4. MINOCYCLINE [Suspect]
     Active Substance: MINOCYCLINE HYDROCHLORIDE
     Indication: Rash
     Dosage: UNK

REACTIONS (4)
  - Syncope [Unknown]
  - Gastrointestinal disorder [Unknown]
  - Dehydration [Unknown]
  - Rash [Recovered/Resolved]

NARRATIVE: CASE EVENT DATE: 20250517
